FAERS Safety Report 13166959 (Version 1)
Quarter: 2017Q1

REPORT INFORMATION
  Report Type: Spontaneous
  Country: US (occurrence: US)
  Receive Date: 20170130
  Receipt Date: 20170130
  Transmission Date: 20170428
  Serious: Yes (Hospitalization)
  Sender: FDA-Public Use
  Company Number: None

PATIENT
  Age: 31 Year
  Sex: Male
  Weight: 62.9 kg

DRUGS (5)
  1. CYCLOPHOSPHAMIDE. [Suspect]
     Active Substance: CYCLOPHOSPHAMIDE
     Dates: end: 20170103
  2. MERCAPTOPURINE. [Suspect]
     Active Substance: MERCAPTOPURINE
     Dates: end: 20170116
  3. METHOTREXATE. [Suspect]
     Active Substance: METHOTREXATE
     Dosage: 25 MHZ
     Dates: end: 20170110
  4. CYTARABINE. [Suspect]
     Active Substance: CYTARABINE
     Dates: end: 20170113
  5. ONCASPAR [Suspect]
     Active Substance: PEGASPARGASE
     Dates: end: 20170117

REACTIONS (5)
  - Vomiting [None]
  - Headache [None]
  - Nausea [None]
  - Neck pain [None]
  - Infusion related reaction [None]

NARRATIVE: CASE EVENT DATE: 20170116
